FAERS Safety Report 5129870-9 (Version None)
Quarter: 2006Q4

REPORT INFORMATION
  Report Type: 
  Country: None (occurrence: None)
  Receive Date: 20061013
  Receipt Date: 20061002
  Transmission Date: 20070319
  Serious: Yes (Other)
  Sender: FDA-Public Use
  Company Number: 14836

PATIENT
  Age: 5 Year
  Sex: Female

DRUGS (5)
  1. VINCRISTINE [Suspect]
     Indication: ACUTE LYMPHOCYTIC LEUKAEMIA
     Dosage: 3800 MICROGRAM TOTAL
  2. PREDNISOLONE [Concomitant]
  3. ELSPAR [Concomitant]
  4. DAUNORUBICIN HCL [Concomitant]
  5. HIGH-DOSE METHYLPREDNISOLONE [Concomitant]

REACTIONS (12)
  - ALANINE AMINOTRANSFERASE INCREASED [None]
  - ASPARTATE AMINOTRANSFERASE INCREASED [None]
  - BLOOD BILIRUBIN INCREASED [None]
  - BLOOD LACTATE DEHYDROGENASE INCREASED [None]
  - BLOOD TRIGLYCERIDES INCREASED [None]
  - CRANIAL NEUROPATHY [None]
  - EYELID PTOSIS [None]
  - HAEMOGLOBIN DECREASED [None]
  - OPHTHALMOPLEGIA [None]
  - PLATELET COUNT DECREASED [None]
  - POLYNEUROPATHY [None]
  - WHITE BLOOD CELL COUNT DECREASED [None]
